FAERS Safety Report 11691610 (Version 4)
Quarter: 2015Q4

REPORT INFORMATION
  Report Type: Spontaneous
  Country: FR (occurrence: FR)
  Receive Date: 20151102
  Receipt Date: 20151123
  Transmission Date: 20160304
  Serious: Yes (Death, Hospitalization, Other)
  Sender: FDA-Public Use
  Company Number: FR-009507513-1510FRA015059

PATIENT
  Age: 76 Year
  Sex: Male

DRUGS (4)
  1. KEYTRUDA [Suspect]
     Active Substance: PEMBROLIZUMAB
     Dosage: 150 MG, Q3W
     Route: 042
     Dates: start: 20150813, end: 20150813
  2. KEYTRUDA [Suspect]
     Active Substance: PEMBROLIZUMAB
     Dosage: 150 MG, Q3W
     Route: 042
     Dates: start: 20150826, end: 20150826
  3. KEYTRUDA [Suspect]
     Active Substance: PEMBROLIZUMAB
     Dosage: 150 MG, Q3W
     Route: 042
     Dates: start: 20150916, end: 20150916
  4. KEYTRUDA [Suspect]
     Active Substance: PEMBROLIZUMAB
     Dosage: 150 MG, Q3W
     Route: 042
     Dates: start: 20150722, end: 20150722

REACTIONS (3)
  - Septic shock [Fatal]
  - Multi-organ failure [Fatal]
  - Colitis [Fatal]

NARRATIVE: CASE EVENT DATE: 20151002
